FAERS Safety Report 4629503-1 (Version None)
Quarter: 2005Q2

REPORT INFORMATION
  Report Type: 
  Country: None (occurrence: None)
  Receive Date: 20050405
  Receipt Date: 20050328
  Transmission Date: 20051028
  Serious: Yes (Other)
  Sender: FDA-Public Use
  Company Number: 2005051715

PATIENT
  Sex: Male

DRUGS (2)
  1. ALDACTONE [Suspect]
     Indication: HYPERTENSION
     Dosage: ORAL
     Route: 048
     Dates: start: 20050314
  2. INSULIN ASPART (INSULIN ASPART) [Concomitant]

REACTIONS (1)
  - BLOOD GLUCOSE INCREASED [None]
